FAERS Safety Report 8800338 (Version 1)
Quarter: 2012Q4

REPORT INFORMATION
  Report Type: 
  Country: US (occurrence: US)
  Receive Date: 20120921
  Receipt Date: 20120921
  Transmission Date: 20130627
  Serious: Yes (Other)
  Sender: FDA-Public Use
  Company Number: CHPA2012US019808

PATIENT
  Age: 89 Year
  Sex: Female

DRUGS (1)
  1. MAALOX ANTACID WITH ANTI-GAS [Suspect]
     Dosage: 1 DF, ONCE/SINGLE
     Route: 048
     Dates: start: 20120912, end: 20120912

REACTIONS (5)
  - Visual impairment [Not Recovered/Not Resolved]
  - Malaise [Not Recovered/Not Resolved]
  - Headache [Not Recovered/Not Resolved]
  - Eye pain [Not Recovered/Not Resolved]
  - Feeling cold [Not Recovered/Not Resolved]
